FAERS Safety Report 16380648 (Version 4)
Quarter: 2019Q4

REPORT INFORMATION
  Report Type: Spontaneous
  Country: ES (occurrence: ES)
  Receive Date: 20190601
  Receipt Date: 20191203
  Transmission Date: 20200122
  Serious: Yes (Hospitalization, Other)
  Sender: FDA-Public Use
  Company Number: ES-ACCORD-130022

PATIENT
  Age: 17 Month
  Sex: Female
  Weight: 12.1 kg

DRUGS (2)
  1. LORMETAZEPAM [Suspect]
     Active Substance: LORMETAZEPAM
     Dosage: HALF OF LORMETAZEPAM (1 MG)
     Route: 048
  2. QUETIAPINE. [Suspect]
     Active Substance: QUETIAPINE
     Dosage: TWO TABLETS OF 50 MG, STRENGTH: 50 MG
     Route: 048

REACTIONS (8)
  - Altered state of consciousness [Recovered/Resolved]
  - Neutropenia [Recovered/Resolved]
  - Accidental overdose [Unknown]
  - Urinary retention [Recovered/Resolved]
  - Somnolence [Recovered/Resolved]
  - Accidental exposure to product by child [Unknown]
  - Miosis [Recovered/Resolved]
  - Thrombocytopenia [Recovered/Resolved]
